FAERS Safety Report 9851680 (Version 1)
Quarter: 2014Q1

REPORT INFORMATION
  Report Type: Spontaneous
  Country: US (occurrence: US)
  Receive Date: 20140129
  Receipt Date: 20140129
  Transmission Date: 20141002
  Serious: No
  Sender: FDA-Public Use
  Company Number: US-009507513-1401USA003891

PATIENT
  Sex: Female

DRUGS (3)
  1. PROVENTIL [Suspect]
     Indication: ASTHMA
     Dosage: 2 PUFFS EVERY 8 HOURS
     Route: 055
     Dates: start: 2009
  2. PROVENTIL [Suspect]
     Indication: EMPHYSEMA
  3. SPIRIVA [Concomitant]

REACTIONS (3)
  - Lung infection [Recovering/Resolving]
  - Bronchitis [Recovering/Resolving]
  - Product packaging quantity issue [Unknown]
